FAERS Safety Report 15996708 (Version 1)
Quarter: 2019Q1

REPORT INFORMATION
  Report Type: Spontaneous
  Country: US (occurrence: US)
  Receive Date: 20190222
  Receipt Date: 20190222
  Transmission Date: 20190418
  Serious: No
  Sender: FDA-Public Use
  Company Number: US-ELI_LILLY_AND_COMPANY-US201902010731

PATIENT
  Age: 57 Year
  Sex: Female

DRUGS (1)
  1. HUMATROPE [Suspect]
     Active Substance: SOMATROPIN
     Indication: GROWTH HORMONE DEFICIENCY
     Dosage: 0.2 MG, DAILY
     Route: 065
     Dates: start: 201511

REACTIONS (4)
  - Parosmia [Unknown]
  - General physical health deterioration [Unknown]
  - Amnesia [Unknown]
  - Nasopharyngitis [Unknown]
